FAERS Safety Report 6567274-2 (Version None)
Quarter: 2010Q1

REPORT INFORMATION
  Report Type: 
  Country: None (occurrence: None)
  Receive Date: 20100202
  Receipt Date: 20100120
  Transmission Date: 20100710
  Serious: Yes (Other)
  Sender: FDA-Public Use
  Company Number: US-BAYER-200937699NA

PATIENT
  Age: 74 Year
  Sex: Male
  Weight: 73 kg

DRUGS (12)
  1. MAGNEVIST [Suspect]
     Indication: NUCLEAR MAGNETIC RESONANCE IMAGING
     Dosage: TOTAL OF 10 MRI'S FROM 2003-2007
     Dates: start: 20030401, end: 20030401
  2. MAGNEVIST [Suspect]
     Dosage: TOTAL OF 10 MRI'S FROM 2003-2007
     Dates: start: 20030101, end: 20030101
  3. MAGNEVIST [Suspect]
     Dates: start: 20040101, end: 20040101
  4. MAGNEVIST [Suspect]
     Dates: start: 20050101, end: 20050101
  5. MAGNEVIST [Suspect]
     Dates: start: 20060101, end: 20060101
  6. MAGNEVIST [Suspect]
     Dates: start: 20070101, end: 20070101
  7. MAGNEVIST [Suspect]
     Dates: start: 20070101, end: 20070101
  8. MAGNEVIST [Suspect]
     Dates: start: 20060101, end: 20060101
  9. MAGNEVIST [Suspect]
     Dates: start: 20050101, end: 20050101
  10. MAGNEVIST [Suspect]
     Dates: start: 20040101, end: 20040101
  11. COREG [Concomitant]
  12. ACE INHIBITORS [Concomitant]

REACTIONS (4)
  - BLOOD CREATININE INCREASED [None]
  - BLOOD UREA INCREASED [None]
  - RENAL DISORDER [None]
  - RENAL INJURY [None]
